FAERS Safety Report 9435008 (Version 1)
Quarter: 2013Q3

REPORT INFORMATION
  Report Type: Spontaneous
  Country: FR (occurrence: FR)
  Receive Date: 20130801
  Receipt Date: 20130801
  Transmission Date: 20140515
  Serious: Yes (Hospitalization)
  Sender: FDA-Public Use
  Company Number: CHNY2013FR001606

PATIENT
  Age: 81 Year
  Sex: Female
  Weight: 87 kg

DRUGS (14)
  1. VOLTARENE [Suspect]
     Indication: PAIN
     Dosage: 50 MG, TID
     Route: 048
     Dates: start: 20130704, end: 20130705
  2. LOVENOX [Suspect]
     Indication: ENDARTERECTOMY
     Dosage: 8000 IU,
     Route: 058
     Dates: start: 20130627, end: 20130704
  3. XARELTO [Suspect]
     Indication: ATRIAL FIBRILLATION
     Dosage: 15 MG
     Route: 048
     Dates: start: 20130704, end: 20130704
  4. BISOPROLOL [Concomitant]
  5. TRAMADOL [Concomitant]
     Dates: end: 20130704
  6. DIFFU K [Concomitant]
  7. RENITEC [Concomitant]
  8. GLUCOPHAGE [Concomitant]
  9. PARACETAMOL [Concomitant]
  10. LEVOTHYROXIN [Concomitant]
  11. TAHOR [Concomitant]
  12. MOTILIUM ^BYK GULDEN^ [Concomitant]
  13. NOVORAPID [Concomitant]
  14. INEXIUM//ESOMEPRAZOLE MAGNESIUM [Concomitant]

REACTIONS (4)
  - Haematoma [Unknown]
  - Median nerve injury [Unknown]
  - Neuralgia [Unknown]
  - Sensory disturbance [Unknown]
